FAERS Safety Report 8264685-4 (Version None)
Quarter: 2012Q2

REPORT INFORMATION
  Report Type: 
  Country: None (occurrence: None)
  Receive Date: 20120403
  Receipt Date: 20120319
  Transmission Date: 20120825
  Serious: Yes (Other)
  Sender: FDA-Public Use
  Company Number: NSR_00514_2012

PATIENT
  Age: 60 Year
  Sex: Female
  Weight: 61.2356 kg

DRUGS (5)
  1. FLUOXETINE [Concomitant]
  2. ATIVAN [Concomitant]
  3. FLUOXETINE [Suspect]
     Indication: DEPRESSION
     Dosage: ([TOTAL DAILY DOSE 60 MG, FREQUENCY UNKNOWN] ORAL)
     Route: 048
     Dates: start: 20120313
  4. VICODIN [Concomitant]
  5. LOVAZA [Concomitant]

REACTIONS (4)
  - MYOCARDIAL INFARCTION [None]
  - PANIC ATTACK [None]
  - PARAESTHESIA [None]
  - HYPOAESTHESIA [None]
